FAERS Safety Report 25089777 (Version 2)
Quarter: 2025Q2

REPORT INFORMATION
  Report Type: Report from Study
  Country: US (occurrence: US)
  Receive Date: 20250318
  Receipt Date: 20250501
  Transmission Date: 20250717
  Serious: Yes (Hospitalization, Other)
  Sender: UCB
  Company Number: US-UCBSA-2025015274

PATIENT
  Age: 57 Year
  Sex: Male

DRUGS (1)
  1. ROZANOLIXIZUMAB [Suspect]
     Active Substance: ROZANOLIXIZUMAB
     Indication: Myasthenia gravis
     Dosage: 840 MILLIGRAM, WEEKLY (QW) FOR 6 WEEKS
     Route: 058
     Dates: start: 20250131

REACTIONS (2)
  - Myasthenia gravis [Not Recovered/Not Resolved]
  - Plasmapheresis [Unknown]

NARRATIVE: CASE EVENT DATE: 20250131
